FAERS Safety Report 8925930 (Version 2)
Quarter: 2012Q4

REPORT INFORMATION
  Report Type: 
  Country: CO (occurrence: CO)
  Receive Date: 20121126
  Receipt Date: 20121130
  Transmission Date: 20130627
  Serious: Yes (Hospitalization, Other)
  Sender: FDA-Public Use
  Company Number: PHHY2012CO106488

PATIENT
  Age: 58 Year
  Sex: Male

DRUGS (2)
  1. SANDOSTATIN LAR [Suspect]
     Indication: ACROMEGALY
     Dosage: 20 mg, UNK
     Route: 030
     Dates: start: 20120928, end: 20121119
  2. ANTIBIOTICS [Suspect]

REACTIONS (2)
  - Limb injury [Recovering/Resolving]
  - Infection [Recovering/Resolving]
